FAERS Safety Report 14430392 (Version 1)
Quarter: 2018Q1

REPORT INFORMATION
  Report Type: Spontaneous
  Country: US (occurrence: US)
  Receive Date: 20180123
  Receipt Date: 20180123
  Transmission Date: 20180509
  Serious: Yes (Other)
  Sender: FDA-Public Use
  Company Number: None

PATIENT
  Age: 34 Year
  Sex: Female
  Weight: 88.65 kg

DRUGS (4)
  1. MULTI-VITAMIN [Concomitant]
     Active Substance: .ALPHA.-TOCOPHEROL ACETATE, DL-\ASCORBIC ACID\CYANOCOBALAMIN\FLUORIDE ION\FOLIC ACID\NIACIN\PYRIDOXINE\RIBOFLAVIN\THIAMINE\VITAMIN A\VITAMIN D
  2. ACZONE [Suspect]
     Active Substance: DAPSONE
     Indication: ACNE
     Route: 061
     Dates: start: 20180103, end: 20180118
  3. EYE DROPS [Concomitant]
     Active Substance: UNSPECIFIED INGREDIENT
  4. ALBUTEROL INHALER [Concomitant]
     Active Substance: ALBUTEROL

REACTIONS (8)
  - Anxiety [None]
  - Pyrexia [None]
  - Weight decreased [None]
  - Dehydration [None]
  - Influenza like illness [None]
  - Vomiting [None]
  - Chills [None]
  - Nausea [None]

NARRATIVE: CASE EVENT DATE: 20180107
